FAERS Safety Report 14108120 (Version 2)
Quarter: 2017Q4

REPORT INFORMATION
  Report Type: Spontaneous
  Country: FR (occurrence: FR)
  Receive Date: 20171019
  Receipt Date: 20171030
  Transmission Date: 20180321
  Serious: Yes (Hospitalization, Other)
  Sender: FDA-Public Use
  Company Number: FR-TEVA-815777ROM

PATIENT
  Age: 56 Year
  Sex: Male

DRUGS (2)
  1. CLONAZEPAM. [Suspect]
     Active Substance: CLONAZEPAM
     Indication: EPILEPSY
     Dosage: 1 MG
     Route: 030
  2. OLANZAPINE. [Suspect]
     Active Substance: OLANZAPINE
     Indication: SCHIZOPHRENIA
     Dosage: 300 MG MONTHLY
     Route: 030

REACTIONS (9)
  - Dysarthria [Recovered/Resolved]
  - Coma [Recovered/Resolved]
  - Cerebrovascular accident [Recovered/Resolved]
  - Asthenia [Recovered/Resolved]
  - Dysphagia [Recovered/Resolved]
  - Respiratory distress [Recovered/Resolved]
  - Epilepsy [Recovered/Resolved]
  - Dyskinesia [Recovered/Resolved]
  - Hemiparesis [Recovered/Resolved]
